FAERS Safety Report 5239190-X (Version None)
Quarter: 2007Q1

REPORT INFORMATION
  Report Type: 
  Country: None (occurrence: None)
  Receive Date: 20061208
  Receipt Date: 20050916
  Transmission Date: 20070707
  Serious: Yes (Other)
  Sender: FDA-Public Use
  Company Number: 2005UW13796

PATIENT
  Age: 70 Year
  Sex: Male
  Weight: 95.254 kg

DRUGS (7)
  1. CRESTOR [Suspect]
     Indication: BLOOD CHOLESTEROL INCREASED
     Dosage: 5 MG QD PO
     Route: 048
  2. AMIODARONE HCL [Concomitant]
  3. AMARYL [Concomitant]
  4. METOPROLOL SUCCINATE [Concomitant]
  5. TERAZOSIN HCL [Concomitant]
  6. ALLOPURINOL [Concomitant]
  7. LOW DOSE ASPIRIN [Concomitant]

REACTIONS (3)
  - ABDOMINAL PAIN [None]
  - DUODENOGASTRIC REFLUX [None]
  - NAUSEA [None]
